FAERS Safety Report 21573345 (Version 1)
Quarter: 2022Q4

REPORT INFORMATION
  Report Type: Spontaneous
  Country: EG (occurrence: EG)
  Receive Date: 20221109
  Receipt Date: 20221109
  Transmission Date: 20230112
  Serious: Yes (Death, Hospitalization, Congenital Anomaly, Other)
  Sender: FDA-Public Use
  Company Number: EG-SLATE RUN PHARMACEUTICALS-22EG001407

PATIENT

DRUGS (2)
  1. AZITHROMYCIN [Suspect]
     Active Substance: AZITHROMYCIN
     Indication: Maternal exposure during pregnancy
     Dosage: UNK
     Dates: start: 2020
  2. ACETAMINOPHEN [Concomitant]
     Active Substance: ACETAMINOPHEN
     Indication: Maternal exposure during pregnancy
     Dosage: UNK
     Dates: start: 2020

REACTIONS (22)
  - Death [Fatal]
  - Atrioventricular septal defect [Unknown]
  - Choanal atresia [Unknown]
  - Atrial septal defect [Unknown]
  - Ascites [Unknown]
  - Premature baby [Unknown]
  - Intraventricular haemorrhage neonatal [Unknown]
  - Brain oedema [Unknown]
  - Hypoxic-ischaemic encephalopathy [Unknown]
  - Polyhydramnios [Unknown]
  - Hydrops foetalis [Unknown]
  - Hypoalbuminaemia [Unknown]
  - Leukocytosis [Unknown]
  - Thrombocytopenia neonatal [Unknown]
  - Bradycardia foetal [Unknown]
  - Cyanosis neonatal [Unknown]
  - Bradycardia neonatal [Unknown]
  - Heterotaxia [Unknown]
  - Ventricular septal defect [Unknown]
  - Pulmonary artery atresia [Unknown]
  - Aortic valve incompetence [Unknown]
  - Foetal exposure during pregnancy [Recovered/Resolved]

NARRATIVE: CASE EVENT DATE: 20200101
